FAERS Safety Report 24686800 (Version 1)
Quarter: 2024Q4

REPORT INFORMATION
  Report Type: Spontaneous
  Country: US (occurrence: None)
  Receive Date: 20241202
  Receipt Date: 20241202
  Transmission Date: 20250114
  Serious: Yes (Hospitalization)
  Sender: Public
  Company Number: None

PATIENT
  Sex: Female

DRUGS (1)
  1. CUVITRU [Suspect]
     Active Substance: HUMAN IMMUNOGLOBULIN G
     Indication: Immunodeficiency common variable
     Dosage: OTHER STRENGTH : 10GM/50ML ;?FREQUENCY : EVERY OTHER WEEK;?
     Route: 058
     Dates: start: 202102

REACTIONS (7)
  - Asthenia [None]
  - Asthenia [None]
  - Pyrexia [None]
  - Dehydration [None]
  - Diverticulitis [None]
  - Urinary tract infection [None]
  - Weight decreased [None]
